FAERS Safety Report 4957068-3 (Version None)
Quarter: 2006Q1

REPORT INFORMATION
  Report Type: 
  Country: None (occurrence: None)
  Receive Date: 20060323
  Receipt Date: 20060311
  Transmission Date: 20060701
  Serious: Yes (Hospitalization, Other)
  Sender: FDA-Public Use
  Company Number: 2006035577

PATIENT
  Age: 63 Year
  Sex: Male

DRUGS (7)
  1. TIKOSYN [Suspect]
     Indication: ATRIAL FIBRILLATION
     Dosage: 0.5 MG (0.25 MG, BID INTERVAL: EVERYDAY), ORAL
     Route: 048
     Dates: start: 20050101
  2. SANDIMMUNE [Concomitant]
  3. CYCLOSPORINE [Concomitant]
  4. DRUG, UNSPECIFIED [Concomitant]
  5. TOPROL-XL [Concomitant]
  6. ZESTRIL [Concomitant]
  7. CARDIZEM [Concomitant]

REACTIONS (5)
  - ATRIAL FIBRILLATION [None]
  - DISEASE RECURRENCE [None]
  - HEPATIC ENZYME INCREASED [None]
  - PRECANCEROUS SKIN LESION [None]
  - PRURITUS [None]
